FAERS Safety Report 15846522 (Version 1)
Quarter: 2019Q1

REPORT INFORMATION
  Report Type: Spontaneous
  Country: SK (occurrence: SK)
  Receive Date: 20190120
  Receipt Date: 20190120
  Transmission Date: 20190417
  Serious: Yes (Death, Other)
  Sender: FDA-Public Use
  Company Number: SK-SUN PHARMACEUTICAL INDUSTRIES LTD-2019RR-196530

PATIENT
  Age: 53 Year
  Sex: Female

DRUGS (2)
  1. GEMCITABINE [Suspect]
     Active Substance: GEMCITABINE\GEMCITABINE HYDROCHLORIDE
     Indication: PANCREATIC CARCINOMA
     Dosage: 1000 MILLIGRAM/SQ. METER, D1, 8, 15, AS FIRST LINE THERAPY, 3 CYCLES
     Route: 065
     Dates: start: 201703, end: 201706
  2. CISPLATIN. [Suspect]
     Active Substance: CISPLATIN
     Indication: PANCREATIC CARCINOMA
     Dosage: 50 MILLIGRAM/SQ. METER, D1, 15, AS FIRST LINE THERAPY, EVERY 28 DAYS, 3 CYCLES
     Route: 065
     Dates: start: 201703, end: 201706

REACTIONS (9)
  - Metastasis [Fatal]
  - Thrombocytopenia [Unknown]
  - Anaemia [Unknown]
  - Nausea [Unknown]
  - Decreased appetite [Unknown]
  - Performance status decreased [Unknown]
  - Gastrointestinal toxicity [Unknown]
  - Condition aggravated [Unknown]
  - Disease progression [Fatal]
